FAERS Safety Report 18666614 (Version 1)
Quarter: 2020Q4

REPORT INFORMATION
  Report Type: Spontaneous
  Country: FR (occurrence: FR)
  Receive Date: 20201227
  Receipt Date: 20201227
  Transmission Date: 20210114
  Serious: Yes (Hospitalization)
  Sender: FDA-Public Use
  Company Number: FR-TEVA-2020-FR-1861332

PATIENT
  Age: 50 Year
  Sex: Female
  Weight: 55.5 kg

DRUGS (9)
  1. ZOPICLONE [Concomitant]
     Active Substance: ZOPICLONE
  2. HYDROXYZINE (CHLORHYDRATE D^) [Suspect]
     Active Substance: HYDROXYZINE HYDROCHLORIDE
     Route: 065
  3. LORAZEPAM. [Concomitant]
     Active Substance: LORAZEPAM
  4. TERALITHE [Suspect]
     Active Substance: LITHIUM CARBONATE
     Indication: BIPOLAR I DISORDER
     Dosage: 1000 MG
     Route: 048
     Dates: end: 20201123
  5. SYMBICORT [Concomitant]
     Active Substance: BUDESONIDE\FORMOTEROL FUMARATE DIHYDRATE
  6. TIOTROPIUM (BROMURE DE) MONOHYDRATE [Concomitant]
  7. SALBUTAMOL [Concomitant]
     Active Substance: ALBUTEROL
  8. VORTIOXETINE (BROMHYDRATE DE) [Concomitant]
     Active Substance: VORTIOXETINE HYDROBROMIDE
  9. MONTELUKAST [Concomitant]
     Active Substance: MONTELUKAST SODIUM

REACTIONS (4)
  - Fatigue [Recovering/Resolving]
  - Hypotension [Recovered/Resolved]
  - Antipsychotic drug level increased [Recovering/Resolving]
  - Sinus bradycardia [Recovered/Resolved]

NARRATIVE: CASE EVENT DATE: 20201123
